FAERS Safety Report 8315685-7 (Version None)
Quarter: 2012Q2

REPORT INFORMATION
  Report Type: 
  Country: None (occurrence: None)
  Receive Date: 20120426
  Receipt Date: 20120420
  Transmission Date: 20120825
  Serious: Yes (Hospitalization)
  Sender: FDA-Public Use
  Company Number: PHHY2012VE034318

PATIENT

DRUGS (4)
  1. PRIMAQUINE [Interacting]
     Indication: MALARIA
     Dosage: 0.75 MG/KG, UNK
  2. ARTESUNATE [Suspect]
     Indication: MALARIA
     Dosage: 4 MG/KG, ON DAYS 1-3
  3. MEFLOQUINE HYDROCHLORIDE [Interacting]
     Indication: MALARIA
     Dosage: 15 MG/KG, ON DAY 2 AND 10 MG/KG/DAY  ON DAY 3
  4. ARTESUNATE [Interacting]
     Dosage: 10 MG/KG, UNK

REACTIONS (25)
  - SKIN TURGOR DECREASED [None]
  - DIARRHOEA [None]
  - CONVULSION [None]
  - IRRITABILITY [None]
  - DRY MOUTH [None]
  - ABDOMINAL PAIN UPPER [None]
  - TACHYPNOEA [None]
  - PERIPHERAL COLDNESS [None]
  - TETANY [None]
  - ASTHENIA [None]
  - DYSPNOEA [None]
  - TINNITUS [None]
  - HEADACHE [None]
  - DEHYDRATION [None]
  - GAIT DISTURBANCE [None]
  - PYREXIA [None]
  - CYANOSIS [None]
  - VOMITING [None]
  - MUSCLE RIGIDITY [None]
  - LOSS OF CONSCIOUSNESS [None]
  - AGITATION [None]
  - PULSE ABNORMAL [None]
  - CONFUSIONAL STATE [None]
  - CONJUNCTIVAL HYPERAEMIA [None]
  - DISORIENTATION [None]
